FAERS Safety Report 5505108-5 (Version None)
Quarter: 2007Q4

REPORT INFORMATION
  Report Type: 
  Country: None (occurrence: None)
  Receive Date: 20071102
  Receipt Date: 20071024
  Transmission Date: 20080405
  Serious: Yes (Other)
  Sender: FDA-Public Use
  Company Number: NZ-AVENTIS-200719862GDDC

PATIENT
  Age: 67 Year
  Sex: Female

DRUGS (2)
  1. METRONIDAZOLE [Suspect]
     Indication: COLONIC ATONY
     Dates: start: 20051101, end: 20060601
  2. METRONIDAZOLE [Suspect]
     Indication: OVERGROWTH BACTERIAL
     Dates: start: 20051101, end: 20060601

REACTIONS (2)
  - OPTIC NEUROPATHY [None]
  - PERIPHERAL SENSORY NEUROPATHY [None]
